FAERS Safety Report 17421612 (Version 2)
Quarter: 2020Q1

REPORT INFORMATION
  Report Type: Spontaneous
  Country: DE (occurrence: DE)
  Receive Date: 20200214
  Receipt Date: 20200220
  Transmission Date: 20200409
  Serious: Yes (Other)
  Sender: FDA-Public Use
  Company Number: DE-GE HEALTHCARE LIFE SCIENCES-2020CSU000679

PATIENT

DRUGS (2)
  1. CLARISCAN [Suspect]
     Active Substance: GADOTERATE MEGLUMINE
     Indication: DIAGNOSTIC PROCEDURE
     Dosage: 20 ML, SINGLE
     Route: 065
     Dates: start: 20180831, end: 20180831
  2. CLARISCAN [Suspect]
     Active Substance: GADOTERATE MEGLUMINE
     Indication: PRODUCT USED FOR UNKNOWN INDICATION

REACTIONS (1)
  - Gadolinium deposition disease [Unknown]

NARRATIVE: CASE EVENT DATE: 20181010
